FAERS Safety Report 7315508-9 (Version None)
Quarter: 2011Q1

REPORT INFORMATION
  Report Type: 
  Country: None (occurrence: None)
  Receive Date: 20110218
  Receipt Date: 20110218
  Transmission Date: 20110831
  Serious: Yes (Hospitalization)
  Sender: FDA-Public Use
  Company Number: None

PATIENT
  Age: 64 Year
  Sex: Male
  Weight: 65.7 kg

DRUGS (4)
  1. VIT D [Concomitant]
  2. ASPIRIN [Suspect]
     Indication: CARDIOVASCULAR EVENT PROPHYLAXIS
     Dosage: 81MG QPM PO
     Route: 048
  3. VIT B12 [Concomitant]
  4. VIT B COMPLEX [Concomitant]

REACTIONS (1)
  - ANAEMIA [None]
